FAERS Safety Report 9221999 (Version 1)
Quarter: 2013Q2

REPORT INFORMATION
  Report Type: Spontaneous
  Country: US (occurrence: None)
  Receive Date: 20130410
  Receipt Date: 20130410
  Transmission Date: 20140414
  Serious: Yes (Hospitalization)
  Sender: FDA-Public Use
  Company Number: None

PATIENT
  Age: 64 Year
  Sex: Male
  Weight: 120 kg

DRUGS (15)
  1. SEPTRA DS [Suspect]
     Dosage: 800MG/160MG  BID  PO?RECENT
     Route: 048
  2. WARFARIN [Suspect]
     Indication: PULMONARY EMBOLISM
     Dosage: 3MG  QPM  PO?CHRONIC
     Route: 048
  3. WARFARIN [Suspect]
     Indication: AORTIC ANEURYSM
     Dosage: 3MG  QPM  PO?CHRONIC
     Route: 048
  4. SPORONOX 100MG PO BID [Suspect]
     Indication: BLASTOMYCOSIS
     Dosage: CHRONIC
  5. ASA [Suspect]
  6. LASIX [Suspect]
  7. FISH OIL [Concomitant]
  8. CRESTOR [Concomitant]
  9. DITROPAN XL [Concomitant]
  10. COREG [Concomitant]
  11. ISOSORBIDE MONONITRATE [Concomitant]
  12. RAMIPRIL [Concomitant]
  13. KCL [Concomitant]
  14. ADVAIR [Concomitant]
  15. FLONASE [Concomitant]

REACTIONS (6)
  - Nausea [None]
  - Vomiting [None]
  - Abdominal pain [None]
  - Renal failure acute [None]
  - International normalised ratio increased [None]
  - Drug interaction [None]
